FAERS Safety Report 23294483 (Version 3)
Quarter: 2024Q1

REPORT INFORMATION
  Report Type: Report from Study
  Country: CN (occurrence: CN)
  Receive Date: 20231213
  Receipt Date: 20240116
  Transmission Date: 20240409
  Serious: No
  Sender: FDA-Public Use
  Company Number: CN-PFIZER INC-PV202300200812

PATIENT
  Age: 85 Year
  Sex: Male
  Weight: 50 kg

DRUGS (34)
  1. NIRMATRELVIR\RITONAVIR [Suspect]
     Active Substance: NIRMATRELVIR\RITONAVIR
     Indication: COVID-19 treatment
     Dosage: [NIRMATRELVIR 300 MG]/[RITONAVIR 100 MG]; 2X/DAY
     Route: 048
     Dates: start: 20220428, end: 20220503
  2. NIRMATRELVIR\RITONAVIR [Suspect]
     Active Substance: NIRMATRELVIR\RITONAVIR
     Dosage: [NIRMATRELVIR 300 MG]/[RITONAVIR 100 MG]; 2X/DAY
     Route: 048
     Dates: start: 20220506, end: 20220507
  3. CLOPIDOGREL BISULFATE [Concomitant]
     Active Substance: CLOPIDOGREL BISULFATE
     Indication: Anticoagulant therapy
     Dosage: UNK
     Route: 048
     Dates: start: 20220426, end: 20220507
  4. ATORVASTATIN CALCIUM [Concomitant]
     Active Substance: ATORVASTATIN CALCIUM
     Indication: Blood cholesterol increased
     Dosage: UNK
     Route: 048
     Dates: start: 20220426, end: 20220507
  5. ATORVASTATIN CALCIUM [Concomitant]
     Active Substance: ATORVASTATIN CALCIUM
     Indication: Arteriosclerosis
  6. METOPROLOL TARTRATE [Concomitant]
     Active Substance: METOPROLOL TARTRATE
     Indication: Heart rate increased
     Dosage: UNK
     Route: 048
     Dates: start: 20220426, end: 20220507
  7. TIOTROPIUM BROMIDE [Concomitant]
     Active Substance: TIOTROPIUM BROMIDE
     Indication: Asthma
     Dosage: POWDER FOR INHALATION
     Route: 050
     Dates: start: 20220426, end: 20220506
  8. CEFTIZOXIME SODIUM [Concomitant]
     Active Substance: CEFTIZOXIME SODIUM
     Indication: Infection
     Dosage: UNK
     Route: 042
     Dates: start: 20220426, end: 20220507
  9. VITAMIN B6 [Concomitant]
     Active Substance: PYRIDOXINE HYDROCHLORIDE
     Indication: Vitamin supplementation
     Dosage: UNK
     Route: 042
     Dates: start: 20220430, end: 20220430
  10. VITAMIN C [Concomitant]
     Active Substance: ASCORBIC ACID
     Indication: Vitamin supplementation
     Dosage: UNK
     Route: 042
     Dates: start: 20220430, end: 20220506
  11. FINASTERIDE [Concomitant]
     Active Substance: FINASTERIDE
     Indication: Benign prostatic hyperplasia
     Dosage: UNK
     Route: 048
     Dates: start: 20220503, end: 20220507
  12. TAMSULOSIN HYDROCHLORIDE [Concomitant]
     Active Substance: TAMSULOSIN HYDROCHLORIDE
     Indication: Benign prostatic hyperplasia
     Dosage: UNK
     Route: 048
     Dates: start: 20220503, end: 20220507
  13. SODIUM CHLORIDE [Concomitant]
     Active Substance: SODIUM CHLORIDE
     Indication: Fluid replacement
     Dosage: UNK
     Route: 042
     Dates: start: 20220426, end: 20220426
  14. SODIUM CHLORIDE [Concomitant]
     Active Substance: SODIUM CHLORIDE
     Dosage: UNK
     Route: 048
     Dates: start: 20220428, end: 20220428
  15. SODIUM CHLORIDE [Concomitant]
     Active Substance: SODIUM CHLORIDE
     Dosage: UNK
     Route: 048
     Dates: start: 20220501, end: 20220501
  16. SODIUM CHLORIDE [Concomitant]
     Active Substance: SODIUM CHLORIDE
     Dosage: UNK
     Route: 048
     Dates: start: 20220505, end: 20220507
  17. SODIUM CHLORIDE [Concomitant]
     Active Substance: SODIUM CHLORIDE
     Dosage: UNK
     Route: 048
     Dates: start: 20220507, end: 20220507
  18. HEPARIN CALCIUM [Concomitant]
     Active Substance: HEPARIN CALCIUM
     Indication: Anticoagulant therapy
     Dosage: UNK
     Route: 058
     Dates: start: 20220506, end: 20220507
  19. HEPARIN CALCIUM [Concomitant]
     Active Substance: HEPARIN CALCIUM
     Dosage: UNK
     Route: 058
     Dates: start: 20220507, end: 20220507
  20. AMBROXOL HYDROCHLORIDE [Concomitant]
     Active Substance: AMBROXOL HYDROCHLORIDE
     Indication: Productive cough
     Dosage: UNK
     Route: 042
     Dates: start: 20220507, end: 20220507
  21. DYPHYLLINE [Concomitant]
     Active Substance: DYPHYLLINE
     Indication: Asthma
     Dosage: UNK
     Route: 042
     Dates: start: 20220507, end: 20220507
  22. PREDNISONE ACETATE [Concomitant]
     Active Substance: PREDNISONE ACETATE
     Indication: Inflammation
     Dosage: UNK
     Route: 048
     Dates: start: 20220507, end: 20220507
  23. PREDNISONE ACETATE [Concomitant]
     Active Substance: PREDNISONE ACETATE
     Indication: Asthma
  24. LANSOPRAZOLE [Concomitant]
     Active Substance: LANSOPRAZOLE
     Indication: Abdominal discomfort
     Dosage: ENTERIC-COATED TABLETS
     Route: 048
     Dates: start: 20220507
  25. HERBALS\MENTHOL [Concomitant]
     Active Substance: HERBALS\MENTHOL
     Indication: Antiviral treatment
     Dosage: UNK
     Route: 048
     Dates: start: 20220426
  26. GLYCYRRHIZA GLABRA\HERBALS [Concomitant]
     Active Substance: GLYCYRRHIZA GLABRA\HERBALS
     Indication: Productive cough
     Dosage: COMPOUND SOLUTION
     Route: 048
     Dates: start: 20220426, end: 20220426
  27. ASPIRIN [Concomitant]
     Active Substance: ASPIRIN
     Indication: Antiplatelet therapy
     Dosage: ENTERIC-COATED TABLETS
     Route: 048
     Dates: start: 20220430
  28. THYMALFASIN [Concomitant]
     Active Substance: THYMALFASIN
     Indication: Immune system disorder
     Dosage: UNK
     Route: 058
     Dates: start: 20220506, end: 20220506
  29. TORSEMIDE [Concomitant]
     Active Substance: TORSEMIDE
     Indication: Polyuria
     Dosage: UNK
     Route: 030
     Dates: start: 20220507, end: 20220507
  30. TORSEMIDE [Concomitant]
     Active Substance: TORSEMIDE
     Indication: Swelling
  31. MUSK [Concomitant]
     Indication: Cardiac disorder
     Dosage: HEART PILLS
     Route: 048
     Dates: start: 20220507
  32. LANSOPRAZOLE [Concomitant]
     Active Substance: LANSOPRAZOLE
     Indication: Abdominal discomfort
     Dosage: UNK
     Route: 042
     Dates: start: 20220507, end: 20220507
  33. METHYLPREDNISOLONE SODIUM SUCCINATE [Concomitant]
     Active Substance: METHYLPREDNISOLONE SODIUM SUCCINATE
     Indication: Inflammation
     Dosage: UNK
     Route: 042
     Dates: start: 20220507, end: 20220507
  34. METHYLPREDNISOLONE SODIUM SUCCINATE [Concomitant]
     Active Substance: METHYLPREDNISOLONE SODIUM SUCCINATE
     Indication: Asthma

REACTIONS (1)
  - Overdose [Unknown]

NARRATIVE: CASE EVENT DATE: 20220101
